FAERS Safety Report 5846848-8 (Version None)
Quarter: 2008Q3

REPORT INFORMATION
  Report Type: 
  Country: None (occurrence: None)
  Receive Date: 20080815
  Receipt Date: 20080807
  Transmission Date: 20090109
  Serious: Yes (Disabling)
  Sender: FDA-Public Use
  Company Number: PHBS2008NL05359

PATIENT
  Age: 12 Year
  Sex: Male
  Weight: 24 kg

DRUGS (2)
  1. BACLOFEN [Suspect]
     Indication: CEREBRAL PALSY
     Dosage: 50 UG/DAY
     Route: 037
  2. BACLOFEN [Suspect]
     Indication: MUSCLE SPASTICITY
     Dosage: 101 UG/DAY
     Route: 037

REACTIONS (5)
  - DROOLING [None]
  - HYPOTONIA [None]
  - IMPLANT SITE SWELLING [None]
  - ITCHING SCAR [None]
  - URTICARIA [None]
